FAERS Safety Report 24673985 (Version 1)
Quarter: 2024Q4

REPORT INFORMATION
  Report Type: Spontaneous
  Country: US (occurrence: US)
  Receive Date: 20241128
  Receipt Date: 20241128
  Transmission Date: 20250114
  Serious: No
  Sender: Unknown Manufacturer
  Company Number: US-THERATECHNOLOGIES INC.-2024-THE-TES-000489

PATIENT

DRUGS (2)
  1. EGRIFTA SV [Suspect]
     Active Substance: TESAMORELIN ACETATE
     Indication: Weight control
     Dosage: 1.4 MG, QD ,0.35 ML OF THE RECONSTITUTED SOLUTION INJECTED SUBCUTANEOUSLY, ONCE DAILY
     Route: 058
  2. EGRIFTA SV [Suspect]
     Active Substance: TESAMORELIN ACETATE
     Dosage: 1.4 MG, QD ,0.35 ML OF THE RECONSTITUTED SOLUTION INJECTED SUBCUTANEOUSLY, ONCE DAILY
     Route: 058
     Dates: start: 202406, end: 202411

REACTIONS (4)
  - Burning sensation [Not Recovered/Not Resolved]
  - Rash [Not Recovered/Not Resolved]
  - Pruritus [Not Recovered/Not Resolved]
  - Off label use [Not Recovered/Not Resolved]
